FAERS Safety Report 5339958-5 (Version None)
Quarter: 2007Q2

REPORT INFORMATION
  Report Type: 
  Country: None (occurrence: None)
  Receive Date: 20070529
  Receipt Date: 20070511
  Transmission Date: 20071010
  Serious: Yes (Hospitalization)
  Sender: FDA-Public Use
  Company Number: CTI_00913_2007

PATIENT
  Sex: Female

DRUGS (1)
  1. ZYFLO [Suspect]
     Indication: STATUS ASTHMATICUS

REACTIONS (1)
  - RENAL FAILURE ACUTE [None]
